FAERS Safety Report 8720687 (Version 2)
Quarter: 2013Q1

REPORT INFORMATION
  Report Type: Spontaneous
  Country: US (occurrence: None)
  Receive Date: 20120727
  Receipt Date: 20121116
  Transmission Date: 20140127
  Serious: Yes (Hospitalization)
  Sender: FDA-Public Use
  Company Number: 136703

PATIENT
  Age: 74 Year
  Sex: Male
  Weight: 100 kg

DRUGS (1)
  1. LEUCOVORIN CALCIUM [Suspect]
     Indication: COLORECTAL CANCER METASTATIC
     Dosage: DAYS 1 + 2 EVERY 14 DAYS
     Route: 042
     Dates: start: 20120405

REACTIONS (7)
  - Hepatic failure [None]
  - Ascites [None]
  - General physical health deterioration [None]
  - Toxicity to various agents [None]
  - Glomerular filtration rate decreased [None]
  - Fluid retention [None]
  - Condition aggravated [None]
